FAERS Safety Report 6258421-0 (Version None)
Quarter: 2009Q3

REPORT INFORMATION
  Report Type: 
  Country: None (occurrence: None)
  Receive Date: 20090702
  Receipt Date: 20090702
  Transmission Date: 20100115
  Serious: Yes (Hospitalization)
  Sender: FDA-Public Use
  Company Number: None

PATIENT
  Age: 68 Year
  Sex: Male
  Weight: 70.9 kg

DRUGS (29)
  1. TARCEVA [Suspect]
     Indication: METASTATIC SQUAMOUS CELL CARCINOMA
     Dosage: 150 MG DAYS 1-28 PO
     Route: 048
     Dates: start: 20090216, end: 20090614
  2. VIDAZA [Suspect]
     Dosage: 75MG/M2 DAYS 1, 2, 15, 16 IV
     Route: 042
  3. HUMALOG [Concomitant]
  4. LANTUS [Concomitant]
  5. ACETAMINOPHEN AND CODEINE PHOSPHATE [Concomitant]
  6. PROTONIX [Concomitant]
  7. ZOFRAN [Concomitant]
  8. ROBITUSSIN [Concomitant]
  9. COLACE [Concomitant]
  10. MOM [Concomitant]
  11. LEXAPRO [Concomitant]
  12. REMERON [Concomitant]
  13. DIAZEPAM [Concomitant]
  14. BENADRYL [Concomitant]
  15. OYST-CAL-D [Concomitant]
  16. PERCOCET [Concomitant]
  17. FENTANYL [Concomitant]
  18. MORPHINE [Concomitant]
  19. MORPHINE ELIXIR [Concomitant]
  20. PREDNISONE ACETATE [Concomitant]
  21. HOMATROPINE [Concomitant]
  22. ZYMAR [Concomitant]
  23. LORTAB [Concomitant]
  24. REGLAN [Concomitant]
  25. DOXYCYCLINE HYCLATE [Concomitant]
  26. HYDROCORTISONE CREAM [Concomitant]
  27. SCOPOLAMINE [Concomitant]
  28. DOXYCYCLINE [Concomitant]
  29. PROCHLORPERAZINE [Concomitant]

REACTIONS (6)
  - DEHYDRATION [None]
  - DYSPHAGIA [None]
  - FAILURE TO THRIVE [None]
  - HYPOGLYCAEMIA [None]
  - HYPOTENSION [None]
  - PNEUMONIA ASPIRATION [None]
